FAERS Safety Report 10220640 (Version 1)
Quarter: 2014Q2

REPORT INFORMATION
  Report Type: Spontaneous
  Country: US (occurrence: None)
  Receive Date: 20140605
  Receipt Date: 20140605
  Transmission Date: 20141212
  Serious: Yes (Disabling, Other)
  Sender: FDA-Public Use
  Company Number: None

PATIENT
  Age: 52 Year
  Sex: Female
  Weight: 109.77 kg

DRUGS (2)
  1. DULOXETINE HCL [Suspect]
     Indication: FIBROMYALGIA
     Dosage: 2 CAPSULES?ONCE DAILY?TAKEN BY MOUTH
     Route: 048
     Dates: start: 20140101, end: 20140415
  2. DULOXETINE HCL [Suspect]
     Indication: COMPLEX REGIONAL PAIN SYNDROME
     Dosage: 2 CAPSULES?ONCE DAILY?TAKEN BY MOUTH
     Route: 048
     Dates: start: 20140101, end: 20140415

REACTIONS (7)
  - Product substitution issue [None]
  - Pain [None]
  - Nausea [None]
  - Fatigue [None]
  - Dizziness [None]
  - Asthenia [None]
  - Product quality issue [None]
